FAERS Safety Report 10402148 (Version 1)
Quarter: 2014Q1

REPORT INFORMATION
  Report Type: Spontaneous
  Country: US (occurrence: None)
  Receive Date: 20130815
  Receipt Date: 20130815
  Transmission Date: 20141002
  Serious: Yes (Hospitalization)
  Sender: FDA-Public Use
  Company Number: ADR-2009-6306

PATIENT
  Sex: Male

DRUGS (3)
  1. LIORESAL [Suspect]
     Indication: MUSCLE SPASTICITY
     Route: 037
  2. LIORESAL [Suspect]
     Indication: CRANIOCEREBRAL INJURY
     Route: 037
  3. LIORESAL [Suspect]
     Indication: BRAIN INJURY
     Route: 037

REACTIONS (6)
  - Therapeutic response decreased [None]
  - Mental status changes [None]
  - Hallucination [None]
  - Muscle spasms [None]
  - Headache [None]
  - Muscle spasticity [None]
